FAERS Safety Report 5191283-1 (Version None)
Quarter: 2006Q4

REPORT INFORMATION
  Report Type: 
  Country: None (occurrence: None)
  Receive Date: 20061218
  Receipt Date: 20061101
  Transmission Date: 20070319
  Serious: Yes (Hospitalization)
  Sender: FDA-Public Use
  Company Number: 13595095

PATIENT
  Age: 70 Year
  Sex: Male

DRUGS (4)
  1. CETUXIMAB [Suspect]
     Indication: COLORECTAL CANCER METASTATIC
     Dosage: 250 MILLIGRAM/SQ. METER 1/1 WEEK IVD
     Route: 041
     Dates: start: 20050525, end: 20050525
  2. IRINOTECAN HCL [Suspect]
     Indication: COLORECTAL CANCER METASTATIC
     Dosage: 180 MILLIGRAM/SQ. METER 1/2 WEEK IV
     Route: 042
     Dates: start: 20050525, end: 20050525
  3. FOLINIC ACID [Suspect]
     Indication: COLORECTAL CANCER METASTATIC
     Dosage: 775 MILLIGRAM/SQ. METER 1/2 WEEK IV
     Route: 042
     Dates: start: 20050525, end: 20050525
  4. FLUOROURACIL [Suspect]
     Indication: COLORECTAL CANCER METASTATIC
     Dosage: 4700 MILLIGRAM/SQ. METER 1/2 WEEK IV
     Route: 042
     Dates: start: 20050525, end: 20050525

REACTIONS (5)
  - ANAEMIA [None]
  - HYPOCALCAEMIA [None]
  - HYPOMAGNESAEMIA [None]
  - MALAISE [None]
  - NEUTROPENIA [None]
